FAERS Safety Report 12462756 (Version 1)
Quarter: 2016Q2

REPORT INFORMATION
  Report Type: Spontaneous
  Country: IN (occurrence: IN)
  Receive Date: 20160614
  Receipt Date: 20160614
  Transmission Date: 20160815
  Serious: No
  Sender: FDA-Public Use
  Company Number: IN-LUPIN PHARMACEUTICALS INC.-E2B_00005077

PATIENT
  Age: 4 Year
  Sex: Female

DRUGS (2)
  1. ODOXIL [Suspect]
     Active Substance: CEFADROXIL
     Route: 048
  2. ODOXIL [Suspect]
     Active Substance: CEFADROXIL
     Indication: WOUND
     Route: 048
     Dates: start: 20160308

REACTIONS (2)
  - Extra dose administered [Unknown]
  - No adverse event [Unknown]

NARRATIVE: CASE EVENT DATE: 20160308
